FAERS Safety Report 25989399 (Version 2)
Quarter: 2025Q4

REPORT INFORMATION
  Report Type: Report from Study
  Country: KR (occurrence: KR)
  Receive Date: 20251103
  Receipt Date: 20251107
  Transmission Date: 20260117
  Serious: No
  Sender: SUNOVION
  Company Number: KR-BIAL-BIAL-18944

PATIENT
  Sex: Female
  Weight: 63.2 kg

DRUGS (9)
  1. ESLICARBAZEPINE ACETATE [Suspect]
     Active Substance: ESLICARBAZEPINE ACETATE
     Indication: Epilepsy
     Dosage: 400 MILLIGRAM, QD
     Route: 048
     Dates: start: 20241126, end: 20241216
  2. ESLICARBAZEPINE ACETATE [Suspect]
     Active Substance: ESLICARBAZEPINE ACETATE
     Dosage: 600 MILLIGRAM, QD
     Route: 048
     Dates: start: 20241217
  3. KEPPRA [Concomitant]
     Active Substance: LEVETIRACETAM
     Indication: Epilepsy
     Dosage: 1 DOSAGE FORM, QD
     Route: 048
     Dates: start: 20241126
  4. Bcg [Concomitant]
     Indication: Bladder cancer
     Dosage: 1 DOSAGE FORM, QD
     Dates: start: 20250110, end: 20250110
  5. Daihan isotonic sodium chloride [Concomitant]
     Indication: Bladder cancer
     Dosage: 1 DOSAGE FORM, QD
     Dates: start: 20250110, end: 20250110
  6. BCG [Concomitant]
     Indication: Bladder cancer
     Dosage: 1 DOSAGE FORM, DAILY
     Dates: start: 20250117, end: 20250117
  7. BCG [Concomitant]
     Dosage: 1 DOSAGE FORM, QD
     Route: 048
     Dates: start: 20250124, end: 20250124
  8. Daihan isotonic sodium chloride [Concomitant]
     Indication: Bladder cancer
     Dosage: 1 DOSAGE FORM, DAILY
     Dates: start: 20250117, end: 20250117
  9. Daihan isotonic sodium chloride [Concomitant]
     Dosage: 1 DOSAGE FORM, DAILY
     Dates: start: 20250124, end: 20250124

REACTIONS (3)
  - Endometritis [Recovered/Resolved]
  - Underdose [Unknown]
  - Drug titration error [Unknown]

NARRATIVE: CASE EVENT DATE: 20241209
